FAERS Safety Report 12645310 (Version 1)
Quarter: 2016Q3

REPORT INFORMATION
  Report Type: Report from Study
  Country: US (occurrence: US)
  Receive Date: 20160811
  Receipt Date: 20160811
  Transmission Date: 20161109
  Serious: Yes (Hospitalization)
  Sender: FDA-Public Use
  Company Number: US-BRISTOL-MYERS SQUIBB COMPANY-BMS-2016-064495

PATIENT
  Age: 75 Year
  Sex: Male

DRUGS (1)
  1. APIXABAN [Suspect]
     Active Substance: APIXABAN
     Indication: PRODUCT USED FOR UNKNOWN INDICATION
     Route: 048

REACTIONS (10)
  - Cardiac disorder [Unknown]
  - Respiratory disorder [Unknown]
  - Diarrhoea [Unknown]
  - Wheezing [Unknown]
  - Balance disorder [Unknown]
  - Insomnia [Unknown]
  - Myalgia [Unknown]
  - Dizziness [Unknown]
  - Gait disturbance [Unknown]
  - Syncope [Unknown]

NARRATIVE: CASE EVENT DATE: 20160802
